FAERS Safety Report 25681064 (Version 2)
Quarter: 2025Q3

REPORT INFORMATION
  Report Type: Report from Study
  Country: US (occurrence: US)
  Receive Date: 20250814
  Receipt Date: 20250825
  Transmission Date: 20251021
  Serious: Yes (Other)
  Sender: SANOFI AVENTIS
  Company Number: US-SA-2025SA234618

PATIENT
  Age: 22 Year
  Sex: Male

DRUGS (5)
  1. AGALSIDASE BETA [Suspect]
     Active Substance: AGALSIDASE BETA
     Indication: Fabry^s disease
     Dosage: 50 (UNITS NOT PROVIDED), QOW
     Route: 042
     Dates: start: 202505, end: 2025
  2. AGALSIDASE BETA [Suspect]
     Active Substance: AGALSIDASE BETA
     Dosage: 50 (UNITS NOT PROVIDED), QOW
     Route: 042
     Dates: start: 2025, end: 2025
  3. AGALSIDASE BETA [Suspect]
     Active Substance: AGALSIDASE BETA
     Dosage: 50 (UNITS NOT PROVIDED), QOW
     Route: 042
     Dates: start: 2025, end: 2025
  4. AGALSIDASE BETA [Suspect]
     Active Substance: AGALSIDASE BETA
     Dosage: 50 MG, QOW
     Dates: start: 2025, end: 20250806
  5. ZOFRAN [Concomitant]
     Active Substance: ONDANSETRON HYDROCHLORIDE
     Dates: start: 2025

REACTIONS (13)
  - Tunnel vision [Recovering/Resolving]
  - Angiokeratoma [Recovering/Resolving]
  - Condition aggravated [Recovering/Resolving]
  - Dry mouth [Recovering/Resolving]
  - Drug hypersensitivity [Unknown]
  - Lacrimation increased [Recovering/Resolving]
  - Dyspnoea [Recovered/Resolved]
  - Pallor [Recovering/Resolving]
  - Pain [Recovering/Resolving]
  - Vomiting [Recovering/Resolving]
  - Nausea [Recovering/Resolving]
  - Feeling cold [Recovering/Resolving]
  - Drug specific antibody present [Unknown]

NARRATIVE: CASE EVENT DATE: 20250101
